FAERS Safety Report 7907207-7 (Version None)
Quarter: 2011Q4

REPORT INFORMATION
  Report Type: 
  Country: None (occurrence: None)
  Receive Date: 20111110
  Receipt Date: 20111101
  Transmission Date: 20120403
  Serious: Yes (Disabling, Other)
  Sender: FDA-Public Use
  Company Number: US-NAPPMUNDI-USA-2010-0048828

PATIENT
  Age: 39 Year
  Sex: Male

DRUGS (1)
  1. OXYCONTIN [Suspect]
     Indication: SURGERY
     Dosage: 10 TABLET, DAILY

REACTIONS (23)
  - DRUG DEPENDENCE [None]
  - SUBSTANCE ABUSE [None]
  - PAIN [None]
  - MALAISE [None]
  - GENERAL PHYSICAL HEALTH DETERIORATION [None]
  - SELF INJURIOUS BEHAVIOUR [None]
  - TREMOR [None]
  - ARTERIAL INJURY [None]
  - CONVERSION DISORDER [None]
  - EUPHORIC MOOD [None]
  - ACCIDENT [None]
  - HAEMORRHAGE [None]
  - DIZZINESS [None]
  - INTENTIONAL SELF-INJURY [None]
  - FAMILY STRESS [None]
  - INFLUENZA LIKE ILLNESS [None]
  - SUICIDAL IDEATION [None]
  - SUICIDE ATTEMPT [None]
  - MENTAL IMPAIRMENT [None]
  - HEAD INJURY [None]
  - FEELINGS OF WORTHLESSNESS [None]
  - DISORIENTATION [None]
  - DRUG TOLERANCE [None]
